FAERS Safety Report 5468297-7 (Version None)
Quarter: 2007Q3

REPORT INFORMATION
  Report Type: 
  Country: None (occurrence: None)
  Receive Date: 20070925
  Receipt Date: 20070910
  Transmission Date: 20080115
  Serious: Yes (Hospitalization)
  Sender: FDA-Public Use
  Company Number: A-JP2005-12097

PATIENT
  Age: 42 Year
  Sex: Female
  Weight: 49 kg

DRUGS (10)
  1. TRACLEER [Suspect]
     Indication: PULMONARY HYPERTENSION
     Dosage: 125 MG, BID, ORAL, 62.5 MG, BID, ORAL, 93.75 MG, BID, ORAL
     Route: 048
     Dates: start: 20050613, end: 20050710
  2. TRACLEER [Suspect]
     Indication: PULMONARY HYPERTENSION
     Dosage: 125 MG, BID, ORAL, 62.5 MG, BID, ORAL, 93.75 MG, BID, ORAL
     Route: 048
     Dates: start: 20050711, end: 20050815
  3. TRACLEER [Suspect]
     Indication: PULMONARY HYPERTENSION
     Dosage: 125 MG, BID, ORAL, 62.5 MG, BID, ORAL, 93.75 MG, BID, ORAL
     Route: 048
     Dates: start: 20050816, end: 20050905
  4. TRACLEER [Suspect]
     Indication: PULMONARY HYPERTENSION
     Dosage: 125 MG, BID, ORAL, 62.5 MG, BID, ORAL, 93.75 MG, BID, ORAL
     Route: 048
     Dates: start: 20050906
  5. WARFARIN POTASSIUM(WARFARIN POTASSIUM) [Suspect]
  6. BERAPROST SODIUM (BERAPROST SODIUM) [Concomitant]
  7. FERRIC PYROPHOSPHATE (FERRIC PYROPHOSPHATE) [Concomitant]
  8. THYROID PREPARATIONS [Concomitant]
  9. FUROSEMIDE [Concomitant]
  10. SPIRONOLACTONE [Concomitant]

REACTIONS (5)
  - ALANINE AMINOTRANSFERASE INCREASED [None]
  - ASPARTATE AMINOTRANSFERASE INCREASED [None]
  - COAGULATION TEST ABNORMAL [None]
  - DRUG INTERACTION [None]
  - HEPATIC FUNCTION ABNORMAL [None]
